FAERS Safety Report 7096790-2 (Version None)
Quarter: 2010Q4

REPORT INFORMATION
  Report Type: 
  Country: None (occurrence: None)
  Receive Date: 20101111
  Receipt Date: 20101101
  Transmission Date: 20110411
  Serious: Yes (Hospitalization)
  Sender: FDA-Public Use
  Company Number: NL-MEDIMMUNE-MEDI-0011606

PATIENT
  Sex: Male
  Weight: 8.4 kg

DRUGS (2)
  1. SYNAGIS [Suspect]
     Route: 051
     Dates: start: 20100904, end: 20100904
  2. SYNAGIS [Suspect]
     Route: 051
     Dates: start: 20101004, end: 20101004

REACTIONS (7)
  - DYSPNOEA [None]
  - GASTROINTESTINAL VIRAL INFECTION [None]
  - MALAISE [None]
  - NASOPHARYNGITIS [None]
  - PYREXIA [None]
  - RASH [None]
  - VOMITING [None]
